FAERS Safety Report 4838488-4 (Version None)
Quarter: 2005Q4

REPORT INFORMATION
  Report Type: 
  Country: None (occurrence: None)
  Receive Date: 20051123
  Receipt Date: 20051110
  Transmission Date: 20060501
  Serious: Yes (Death)
  Sender: FDA-Public Use
  Company Number: 2005S1010024

PATIENT
  Age: 42 Year
  Sex: Male

DRUGS (7)
  1. CLOZAPINE [Suspect]
     Indication: OBSESSIVE-COMPULSIVE DISORDER
     Dosage: 50 MG; QAM; ORAL
     Route: 048
     Dates: start: 20000906, end: 20051001
  2. CLOZAPINE [Suspect]
     Indication: SCHIZOPHRENIA, UNDIFFERENTIATED TYPE
     Dosage: 50 MG; QAM; ORAL
     Route: 048
     Dates: start: 20000906, end: 20051001
  3. CLOZAPINE [Suspect]
     Indication: OBSESSIVE-COMPULSIVE DISORDER
     Dosage: 700 MG; QD; ORAL
     Route: 048
     Dates: start: 20000906, end: 20051001
  4. CLOZAPINE [Suspect]
     Indication: SCHIZOPHRENIA, UNDIFFERENTIATED TYPE
     Dosage: 700 MG; QD; ORAL
     Route: 048
     Dates: start: 20000906, end: 20051001
  5. CHLORPROMAZINE HCL [Concomitant]
  6. PAROXETINE HCL [Concomitant]
  7. CLONAZEPAM [Concomitant]

REACTIONS (3)
  - HISTIOCYTOSIS HAEMATOPHAGIC [None]
  - LYMPHOHISTIOCYTOSIS [None]
  - VIRAL INFECTION [None]
